FAERS Safety Report 6339737-6 (Version None)
Quarter: 2009Q3

REPORT INFORMATION
  Report Type: 
  Country: None (occurrence: None)
  Receive Date: 20090903
  Receipt Date: 20090901
  Transmission Date: 20100115
  Serious: Yes (Death, Other)
  Sender: FDA-Public Use
  Company Number: US-SANOFI-SYNTHELABO-F01200900477

PATIENT
  Sex: Female

DRUGS (2)
  1. OXALIPLATIN [Suspect]
     Indication: COLORECTAL CANCER
     Dosage: UNK
     Route: 041
  2. CAPECITABINE [Suspect]
     Indication: COLORECTAL CANCER
     Dosage: 2500 MG
     Route: 048

REACTIONS (3)
  - CROHN'S DISEASE [None]
  - DIARRHOEA [None]
  - METASTASIS [None]
